FAERS Safety Report 6772223-8 (Version None)
Quarter: 2010Q2

REPORT INFORMATION
  Report Type: 
  Country: None (occurrence: None)
  Receive Date: 20100616
  Receipt Date: 20100609
  Transmission Date: 20101027
  Serious: No
  Sender: FDA-Public Use
  Company Number: US-CEPHALON-2010003150

PATIENT
  Sex: Male

DRUGS (2)
  1. FENTORA [Suspect]
     Indication: CROHN'S DISEASE
     Route: 002
  2. METHADOSE [Concomitant]
     Dates: start: 20030101

REACTIONS (1)
  - DRUG PRESCRIBING ERROR [None]
